FAERS Safety Report 8832391 (Version 3)
Quarter: 2014Q2

REPORT INFORMATION
  Report Type: Spontaneous
  Country: US (occurrence: US)
  Receive Date: 20121009
  Receipt Date: 20140616
  Transmission Date: 20141212
  Serious: No
  Sender: FDA-Public Use
  Company Number: US-ASTRAZENECA-2012SE76805

PATIENT
  Age: 73 Year
  Sex: Female
  Weight: 65.8 kg

DRUGS (6)
  1. NEXIUM [Suspect]
     Indication: GASTROOESOPHAGEAL REFLUX DISEASE
     Route: 048
     Dates: start: 2009
  2. NEXIUM [Suspect]
     Indication: HIATUS HERNIA
     Route: 048
     Dates: start: 2009
  3. NEXIUM [Suspect]
     Indication: DYSPEPSIA
     Route: 048
     Dates: start: 2009
  4. INSULIN [Concomitant]
     Indication: DIABETES MELLITUS
  5. VITAMIN [Concomitant]
  6. ASPIRIN [Concomitant]

REACTIONS (5)
  - Gastrooesophageal reflux disease [Unknown]
  - Regurgitation [Unknown]
  - Oropharyngeal pain [Not Recovered/Not Resolved]
  - Abdominal discomfort [Unknown]
  - Drug dose omission [Not Recovered/Not Resolved]
